FAERS Safety Report 14533883 (Version 1)
Quarter: 2018Q1

REPORT INFORMATION
  Report Type: Report from Study
  Country: FR (occurrence: FR)
  Receive Date: 20180215
  Receipt Date: 20180215
  Transmission Date: 20180509
  Serious: Yes (Life-Threatening, Hospitalization, Other)
  Sender: FDA-Public Use
  Company Number: FR-TESARO, INC-FR-2018TSO00103

PATIENT

DRUGS (1)
  1. NIRAPARIB [Suspect]
     Active Substance: NIRAPARIB
     Indication: OVARIAN CANCER RECURRENT
     Dosage: 300 MG, QD
     Route: 048
     Dates: start: 20171114, end: 20180124

REACTIONS (8)
  - Platelet count decreased [Unknown]
  - Subileus [Not Recovered/Not Resolved]
  - Anaemia [Unknown]
  - Laboratory test abnormal [Unknown]
  - Pelvic mass [Unknown]
  - Abdominal pain [Unknown]
  - Vomiting [Unknown]
  - Metastases to peritoneum [Not Recovered/Not Resolved]

NARRATIVE: CASE EVENT DATE: 20171211
